FAERS Safety Report 5897803-3 (Version None)
Quarter: 2008Q3

REPORT INFORMATION
  Report Type: 
  Country: None (occurrence: None)
  Receive Date: 20080924
  Receipt Date: 20080924
  Transmission Date: 20090109
  Serious: Yes (Other)
  Sender: FDA-Public Use
  Company Number: None

PATIENT
  Age: 58 Year
  Sex: Female
  Weight: 52.1637 kg

DRUGS (1)
  1. FOSAMAX PLUS D [Suspect]
     Indication: OSTEOPOROSIS
     Dosage: ONE TABLET ONCE A WEEK PO
     Route: 048
     Dates: start: 19900101, end: 20080711

REACTIONS (4)
  - CHEST PAIN [None]
  - DYSPEPSIA [None]
  - HYPOPHAGIA [None]
  - ODYNOPHAGIA [None]
